FAERS Safety Report 22096983 (Version 1)
Quarter: 2023Q1

REPORT INFORMATION
  Report Type: Spontaneous
  Country: CN (occurrence: CN)
  Receive Date: 20230315
  Receipt Date: 20230315
  Transmission Date: 20230417
  Serious: Yes (Other)
  Sender: FDA-Public Use
  Company Number: CN-PFIZER INC-PV202300046463

PATIENT
  Age: 33 Year
  Sex: Male
  Weight: 69 kg

DRUGS (5)
  1. EPIRUBICIN HYDROCHLORIDE [Suspect]
     Active Substance: EPIRUBICIN HYDROCHLORIDE
     Indication: Neoplasm malignant
     Dosage: 30 MG, 1X/DAY
     Route: 041
     Dates: start: 20230112, end: 20230114
  2. IFOSFAMIDE [Suspect]
     Active Substance: IFOSFAMIDE
     Indication: Neoplasm malignant
     Dosage: 3 G, 1X/DAY
     Route: 041
     Dates: start: 20230112, end: 20230116
  3. SODIUM CHLORIDE [Concomitant]
     Active Substance: SODIUM CHLORIDE
     Indication: Neoplasm malignant
     Dosage: 100 ML, 1X/DAY
     Route: 041
     Dates: start: 20230112, end: 20230114
  4. SODIUM CHLORIDE [Concomitant]
     Active Substance: SODIUM CHLORIDE
     Indication: Neoplasm malignant
     Dosage: 1000 ML, 1X/DAY
     Route: 041
     Dates: start: 20230112, end: 20230116
  5. STERILE WATER [Concomitant]
     Active Substance: WATER
     Indication: Neoplasm malignant
     Dosage: 15 ML, 1X/DAY
     Route: 041
     Dates: start: 20230112, end: 20230116

REACTIONS (3)
  - Retching [Recovering/Resolving]
  - Nausea [Recovering/Resolving]
  - Vomiting [Recovering/Resolving]

NARRATIVE: CASE EVENT DATE: 20230115
